FAERS Safety Report 20207990 (Version 10)
Quarter: 2024Q3

REPORT INFORMATION
  Report Type: Spontaneous
  Country: US (occurrence: US)
  Receive Date: 20211220
  Receipt Date: 20240729
  Transmission Date: 20241017
  Serious: Yes (Other)
  Sender: PFIZER
  Company Number: US-PFIZER INC-2020365848

PATIENT
  Age: 1 Year
  Sex: Male

DRUGS (5)
  1. BENEFIX [Suspect]
     Active Substance: COAGULATION FACTOR IX RECOMBINANT HUMAN\ISOPROPYL ALCOHOL
     Indication: Haemorrhage
     Dosage: 1X/DAY (600 UNITS (+5%) = 100 UNITS/KG DAILY X 1)
  2. BENEFIX [Suspect]
     Active Substance: COAGULATION FACTOR IX RECOMBINANT HUMAN\ISOPROPYL ALCOHOL
     Indication: Haematoma
     Dosage: 1X/DAY(800 UNITS (+5%) = 100 UNITS/KG ONCE DAILY)
  3. BENEFIX [Suspect]
     Active Substance: COAGULATION FACTOR IX RECOMBINANT HUMAN\ISOPROPYL ALCOHOL
     Dosage: ALTERNATE DAY(900 UNITS (+5%) = 100 UNITS/KG EVERY OTHER DAY)
  4. BENEFIX [Suspect]
     Active Substance: COAGULATION FACTOR IX RECOMBINANT HUMAN\ISOPROPYL ALCOHOL
     Dosage: DAILY (1700 UNITS (+5%) = 100 UNITS/KG DAILY)
  5. BENEFIX [Suspect]
     Active Substance: COAGULATION FACTOR IX RECOMBINANT HUMAN\ISOPROPYL ALCOHOL
     Dosage: 1800 UNITS (+5% ) = 100 UNITS/KG DAILY

REACTIONS (4)
  - Haemorrhage [Not Recovered/Not Resolved]
  - Eye haemorrhage [Unknown]
  - Eye haematoma [Unknown]
  - Eye injury [Unknown]
